FAERS Safety Report 8337078-9 (Version None)
Quarter: 2012Q2

REPORT INFORMATION
  Report Type: 
  Country: None (occurrence: None)
  Receive Date: 20120504
  Receipt Date: 20110812
  Transmission Date: 20120825
  Serious: No
  Sender: FDA-Public Use
  Company Number: US-TEVA-2011003461

PATIENT
  Sex: Female
  Weight: 59.02 kg

DRUGS (6)
  1. SYNTHROID [Concomitant]
  2. CARDIZEM [Concomitant]
     Dates: start: 20110401
  3. PROTONIX [Concomitant]
  4. NUVIGIL [Suspect]
     Indication: NARCOLEPSY
     Dosage: 150 MILLIGRAM;
     Route: 048
     Dates: start: 20110615, end: 20110714
  5. NUVIGIL [Suspect]
     Route: 048
     Dates: start: 20110601
  6. EVISTA [Concomitant]

REACTIONS (2)
  - DYSPEPSIA [None]
  - NAUSEA [None]
